FAERS Safety Report 8123655-7 (Version None)
Quarter: 2012Q1

REPORT INFORMATION
  Report Type: 
  Country: None (occurrence: None)
  Receive Date: 20120208
  Receipt Date: 20120206
  Transmission Date: 20120608
  Serious: Yes (Hospitalization, Other)
  Sender: FDA-Public Use
  Company Number: PHEH2011US008720

PATIENT
  Sex: Female
  Weight: 62.7 kg

DRUGS (7)
  1. MIRALAX [Concomitant]
     Dosage: 17 MG, QD
     Route: 048
     Dates: start: 20110908
  2. KEPPRA [Concomitant]
     Dosage: 1250 MG, DAILY
     Route: 048
     Dates: start: 20110112
  3. EXJADE [Suspect]
     Indication: IRON OVERLOAD
     Dosage: 875 MG, DAILY
     Route: 048
     Dates: start: 20061116
  4. TRAMADOL HCL [Concomitant]
     Dosage: 50 MG, TID
     Route: 048
     Dates: start: 20111104
  5. ONDANSETRON HCL [Concomitant]
  6. EXJADE [Suspect]
     Dosage: 1500 MG, DAILY
     Route: 048
     Dates: start: 20090821
  7. EXJADE [Suspect]
     Indication: SICKLE CELL ANAEMIA
     Dosage: 1000 MG, DAILY
     Route: 048
     Dates: start: 20070924

REACTIONS (2)
  - FALL [None]
  - HIP FRACTURE [None]
